FAERS Safety Report 9934971 (Version 3)
Quarter: 2014Q1

REPORT INFORMATION
  Report Type: Report from Study
  Country: US (occurrence: US)
  Receive Date: 20140228
  Receipt Date: 20140304
  Transmission Date: 20141002
  Serious: Yes (Hospitalization, Other)
  Sender: FDA-Public Use
  Company Number: US-ABBVIE-13P-163-1049065-00

PATIENT
  Sex: Female
  Weight: 65.83 kg

DRUGS (5)
  1. HUMIRA [Suspect]
     Indication: CROHN^S DISEASE
  2. HUMIRA [Suspect]
     Dosage: LOADING DOSE
     Dates: start: 20130211
  3. CIMZIA [Concomitant]
     Indication: PRODUCT USED FOR UNKNOWN INDICATION
  4. ADVIL [Concomitant]
     Indication: PAIN
     Dosage: 4-6 TIMES A DAY
  5. MEXIUM [Concomitant]
     Indication: GASTROOESOPHAGEAL REFLUX DISEASE

REACTIONS (22)
  - Back pain [Not Recovered/Not Resolved]
  - Surgery [Unknown]
  - Surgery [Unknown]
  - Intestinal resection [Unknown]
  - Oedema [Unknown]
  - Scab [Unknown]
  - Gait disturbance [Unknown]
  - Rheumatoid arthritis [Unknown]
  - Psoriatic arthropathy [Unknown]
  - Psoriasis [Unknown]
  - Muscle spasms [Unknown]
  - Menopause [Unknown]
  - Herpes virus infection [Unknown]
  - Post laminectomy syndrome [Unknown]
  - Crohn^s disease [Unknown]
  - Red blood cell sedimentation rate increased [Unknown]
  - Memory impairment [Unknown]
  - Device malfunction [Unknown]
  - Incorrect dose administered [Unknown]
  - Device malfunction [Unknown]
  - Incorrect dose administered [Unknown]
  - Injection site papule [Unknown]
